FAERS Safety Report 14716001 (Version 1)
Quarter: 2018Q2

REPORT INFORMATION
  Report Type: Spontaneous
  Country: FR (occurrence: FR)
  Receive Date: 20180404
  Receipt Date: 20180404
  Transmission Date: 20180711
  Serious: Yes (Hospitalization)
  Sender: FDA-Public Use
  Company Number: FR-TEVA-2018-FR-876358

PATIENT
  Age: 92 Year
  Sex: Female
  Weight: 57 kg

DRUGS (8)
  1. AMOXICILLIN. [Suspect]
     Active Substance: AMOXICILLIN
     Indication: BRONCHITIS
     Route: 048
  2. KARDEGIC [Concomitant]
     Active Substance: ASPIRIN DL-LYSINE
     Route: 048
  3. FUROSEMIDE. [Concomitant]
     Active Substance: FUROSEMIDE
     Route: 048
  4. CHLORHYDRATE DE LERCANIDIPINE [Concomitant]
     Route: 048
  5. GANFORT 300 MICROGRAMMES/ML + 5 MG/ML, COLLYRE EN SOLUTION [Concomitant]
     Route: 047
  6. EUPHYTOSE [Concomitant]
     Active Substance: HERBALS
  7. AMOXICILLINE ACIDE CLAVULANIQUE SANDOZ [Suspect]
     Active Substance: AMOXICILLIN\CLAVULANATE POTASSIUM
     Indication: BRONCHITIS
     Dosage: SLOW INFUSION IN 50 ML 0.9% NACL
     Route: 041
  8. TOCO 500 MG, CAPSULE MOLLE [Concomitant]
     Route: 048

REACTIONS (2)
  - Erythema [Recovered/Resolved]
  - Transaminases increased [Recovered/Resolved]
